FAERS Safety Report 10258901 (Version 1)
Quarter: 2014Q2

REPORT INFORMATION
  Report Type: Spontaneous
  Country: US (occurrence: None)
  Receive Date: 20140623
  Receipt Date: 20140623
  Transmission Date: 20141212
  Serious: Yes (Hospitalization)
  Sender: FDA-Public Use
  Company Number: CC 14-0038

PATIENT
  Age: 76 Year
  Sex: Female
  Weight: 61.24 kg

DRUGS (1)
  1. STOOL SOFTENER [Suspect]
     Indication: DYSPEPSIA
     Dosage: 1-3 SOFTGELS DAILY-ORAL
     Route: 048
     Dates: start: 20140604

REACTIONS (4)
  - Foreign body [None]
  - Chest pain [None]
  - Myocardial infarction [None]
  - Product physical issue [None]
